FAERS Safety Report 6861401-5 (Version None)
Quarter: 2010Q3

REPORT INFORMATION
  Report Type: 
  Country: None (occurrence: None)
  Receive Date: 20100716
  Receipt Date: 20100507
  Transmission Date: 20110219
  Serious: Yes (Congenital Anomaly)
  Sender: FDA-Public Use
  Company Number: 2010SP024435

PATIENT
  Age: 1 Day
  Sex: Male
  Weight: 2.8622 kg

DRUGS (4)
  1. REBETRON [Suspect]
     Indication: PREGNANCY
     Dosage: ; TRPL
     Route: 064
  2. INTRON A [Suspect]
     Indication: PREGNANCY
     Dosage: ; TRPL
     Route: 064
  3. COPEGUS [Suspect]
     Indication: PREGNANCY
     Dosage: ; TRPL
     Route: 064
  4. PEGASYS [Suspect]
     Indication: PREGNANCY
     Dosage: ; TRPL
     Route: 064

REACTIONS (2)
  - MATERNAL DRUGS AFFECTING FOETUS [None]
  - TRISOMY 21 [None]
